FAERS Safety Report 9466686 (Version 5)
Quarter: 2014Q1

REPORT INFORMATION
  Report Type: Spontaneous
  Country: US (occurrence: US)
  Receive Date: 20130820
  Receipt Date: 20140221
  Transmission Date: 20141002
  Serious: Yes (Hospitalization, Disabling, Other)
  Sender: FDA-Public Use
  Company Number: US-009507513-1308USA007553

PATIENT
  Sex: Female
  Weight: 72.56 kg

DRUGS (15)
  1. FOSAMAX [Suspect]
     Indication: OSTEOPOROSIS
     Dosage: 5 MG, UNK
     Route: 048
     Dates: start: 20000803, end: 20001005
  2. FOSAMAX [Suspect]
     Indication: OSTEOPENIA
     Dosage: 10 MG, UNK
     Route: 048
     Dates: start: 20001218, end: 20040614
  3. FOSAMAX [Suspect]
     Dosage: 70 MG, UNK
     Route: 048
     Dates: start: 20010628, end: 20040322
  4. FOSAMAX [Suspect]
     Dosage: UNK
     Route: 048
     Dates: start: 20110128, end: 20110729
  5. ALENDRONATE SODIUM [Suspect]
     Indication: OSTEOPOROSIS
     Dosage: 70 MG, UNK
     Dates: start: 20110128, end: 20110729
  6. CALCIUM (UNSPECIFIED) [Concomitant]
     Dosage: 1200 MG, UNK
     Dates: start: 1998
  7. VITAMINS (UNSPECIFIED) [Concomitant]
     Dosage: UNK
     Dates: start: 1993
  8. HYDROCORTISONE [Concomitant]
     Indication: SYSTEMIC LUPUS ERYTHEMATOSUS
     Dosage: 10 MG, QD
     Dates: start: 2001
  9. HORMONES (UNSPECIFIED) [Concomitant]
     Dosage: UNK
     Dates: start: 1989, end: 2002
  10. PREMPRO [Concomitant]
     Indication: OSTEOPOROSIS
  11. PREMPRO [Concomitant]
     Indication: OSTEOPENIA
  12. ACTONEL [Suspect]
     Indication: OSTEOPOROSIS
     Dosage: 35 MG, QW
     Dates: start: 20040624
  13. ACTONEL [Suspect]
     Indication: OSTEOPENIA
     Dosage: 150 MG, UNK
     Dates: start: 20100721, end: 20101020
  14. BONIVA [Suspect]
     Indication: OSTEOPOROSIS
     Dosage: 150 MG, UNK
     Dates: start: 20060605, end: 20080506
  15. BONIVA [Suspect]
     Indication: OSTEOPENIA

REACTIONS (34)
  - Pathological fracture [Recovered/Resolved]
  - Intramedullary rod insertion [Unknown]
  - Low turnover osteopathy [Not Recovered/Not Resolved]
  - Type 2 diabetes mellitus [Unknown]
  - Bone graft [Unknown]
  - Hip arthroplasty [Unknown]
  - Thoracic operation [Unknown]
  - Foot operation [Unknown]
  - Foot operation [Unknown]
  - Pneumonia [Unknown]
  - Pharyngitis streptococcal [Unknown]
  - Impaired healing [Unknown]
  - Fracture nonunion [Unknown]
  - Medical device removal [Unknown]
  - Medical device removal [Unknown]
  - Sjogren^s syndrome [Unknown]
  - Sciatica [Unknown]
  - Rotator cuff syndrome [Unknown]
  - Joint dislocation [Unknown]
  - Anaemia [Recovered/Resolved]
  - Stitch abscess [Unknown]
  - Infection [Unknown]
  - Polyarthritis [Unknown]
  - Intervertebral disc degeneration [Unknown]
  - Pneumothorax [Unknown]
  - Deep vein thrombosis [Unknown]
  - Staphylococcal infection [Recovered/Resolved]
  - Osteoarthritis [Unknown]
  - Bone disorder [Unknown]
  - Back pain [Unknown]
  - Pain in extremity [Unknown]
  - Gastrooesophageal reflux disease [Unknown]
  - Arthralgia [Unknown]
  - Arthralgia [Unknown]
